FAERS Safety Report 5373592-6 (Version None)
Quarter: 2007Q2

REPORT INFORMATION
  Report Type: 
  Country: None (occurrence: None)
  Receive Date: 20070628
  Receipt Date: 20070613
  Transmission Date: 20071010
  Serious: Yes (Hospitalization, Other)
  Sender: FDA-Public Use
  Company Number: DE-PURDUE-DEU_2007_0003259

PATIENT
  Age: 62 Year
  Sex: Male

DRUGS (13)
  1. PALLADON RETARD 16 MG [Suspect]
     Indication: PAIN
     Dosage: 16 MG, TID
     Route: 048
     Dates: start: 20060101, end: 20060430
  2. PALLADON RETARD 16 MG [Suspect]
     Dosage: UNK, UNK
     Route: 048
     Dates: start: 19980101, end: 20060101
  3. PALLADON RETARD 16 MG [Suspect]
     Dosage: 16 MG, BID
     Route: 048
     Dates: start: 20060501
  4. DOLANTIN [Suspect]
     Indication: PAIN
     Dosage: 25 MG, QID
     Route: 058
     Dates: start: 20060401
  5. MIRTAZAPINE [Concomitant]
  6. FOLIC ACID [Concomitant]
  7. DALMADORM ^ICN^ [Concomitant]
  8. NEURONTIN [Concomitant]
  9. ZOCOR [Concomitant]
  10. BRONCHORETARD [Concomitant]
  11. ACETYLSALICYLIC ACID SRT [Concomitant]
  12. ACERCOMP [Concomitant]
  13. SPIRIVA [Concomitant]

REACTIONS (8)
  - AMNESIA [None]
  - CARDIOVASCULAR DISORDER [None]
  - DEPRESSION [None]
  - DIARRHOEA [None]
  - DRUG DEPENDENCE [None]
  - DRUG WITHDRAWAL SYNDROME [None]
  - EPILEPSY [None]
  - RENAL FAILURE ACUTE [None]
